FAERS Safety Report 5407227-0 (Version None)
Quarter: 2007Q3

REPORT INFORMATION
  Report Type: 
  Country: None (occurrence: None)
  Receive Date: 20070807
  Receipt Date: 20070801
  Transmission Date: 20080115
  Serious: Yes (Other)
  Sender: FDA-Public Use
  Company Number: A0667687A

PATIENT
  Age: 51 Year
  Sex: Female

DRUGS (2)
  1. AUGMENTIN '125' [Suspect]
     Indication: SKIN INFECTION
     Dosage: 875MG TWICE PER DAY
     Route: 048
     Dates: start: 20070715, end: 20070724
  2. CELEXA [Concomitant]

REACTIONS (5)
  - CHROMATURIA [None]
  - FAECES DISCOLOURED [None]
  - HEPATIC ENZYME INCREASED [None]
  - JAUNDICE CHOLESTATIC [None]
  - PRURITUS [None]
